FAERS Safety Report 10645267 (Version 6)
Quarter: 2015Q2

REPORT INFORMATION
  Report Type: Report from Study
  Country: CA (occurrence: CA)
  Receive Date: 20141211
  Receipt Date: 20150603
  Transmission Date: 20150821
  Serious: Yes (Other)
  Sender: FDA-Public Use
  Company Number: CA-ROCHE-1303094

PATIENT
  Age: 47 Year
  Sex: Female
  Weight: 58 kg

DRUGS (5)
  1. ACTEMRA [Suspect]
     Active Substance: TOCILIZUMAB
     Indication: RHEUMATOID ARTHRITIS
     Route: 042
     Dates: start: 20131016
  2. ACTEMRA [Suspect]
     Active Substance: TOCILIZUMAB
     Route: 042
     Dates: start: 20140318
  3. ACTEMRA [Suspect]
     Active Substance: TOCILIZUMAB
     Route: 042
     Dates: start: 20140219
  4. PREDNISONE. [Concomitant]
     Active Substance: PREDNISONE
  5. MOBICOX [Concomitant]
     Active Substance: MELOXICAM

REACTIONS (15)
  - Nasopharyngitis [Not Recovered/Not Resolved]
  - Hypotension [Unknown]
  - Polyp [Recovered/Resolved]
  - Dry skin [Not Recovered/Not Resolved]
  - Fibromyalgia [Recovering/Resolving]
  - Lung disorder [Recovered/Resolved]
  - Fatigue [Unknown]
  - Drug ineffective [Unknown]
  - Weight increased [Not Recovered/Not Resolved]
  - Oxygen saturation decreased [Unknown]
  - Arthralgia [Recovered/Resolved]
  - Bronchitis [Recovered/Resolved]
  - Hypertension [Unknown]
  - Influenza [Unknown]
  - Infusion related reaction [Unknown]

NARRATIVE: CASE EVENT DATE: 20131231
